FAERS Safety Report 4444119-8 (Version None)
Quarter: 2004Q3

REPORT INFORMATION
  Report Type: 
  Country: None (occurrence: None)
  Receive Date: 20040729
  Receipt Date: 20030918
  Transmission Date: 20050211
  Serious: Yes (Death)
  Sender: FDA-Public Use
  Company Number: USA-2003-0009675

PATIENT
  Age: 29 Year
  Sex: Male
  Weight: 95.2 kg

DRUGS (10)
  1. MORPHINE SULFATE [Suspect]
  2. HYDROCODONE BITARTRATE [Suspect]
  3. DIAZEPAM [Suspect]
  4. HEROIN (DIAMORPHINE) [Suspect]
  5. CODEINE (CODEINE) [Suspect]
  6. DIPHENYDRAMINE HYDROCHLORIDE (DIPHENYDRAMINE HYDROCHLORIDE) [Suspect]
  7. PROPOXYPHENE HCL [Suspect]
  8. DIHYDROCODEINE (DIHYDROCODEINE) [Suspect]
  9. CAFFEINE (CAFFEINE) [Suspect]
  10. NICOTINE [Suspect]

REACTIONS (2)
  - ACCIDENTAL OVERDOSE [None]
  - MULTIPLE DRUG OVERDOSE [None]
